FAERS Safety Report 6192043-5 (Version None)
Quarter: 2009Q2

REPORT INFORMATION
  Report Type: 
  Country: None (occurrence: None)
  Receive Date: 20090515
  Receipt Date: 20090428
  Transmission Date: 20091009
  Serious: Yes (Death)
  Sender: FDA-Public Use
  Company Number: US-MERCK-0905USA00825

PATIENT
  Age: 90 Year
  Sex: Female

DRUGS (2)
  1. PRIMAXIN [Suspect]
     Indication: RESPIRATORY TRACT INFECTION
     Route: 042
  2. AMIKACIN [Concomitant]
     Route: 065

REACTIONS (4)
  - DEATH [None]
  - HAEMOPTYSIS [None]
  - LUNG INFILTRATION [None]
  - PYREXIA [None]
